FAERS Safety Report 18417343 (Version 2)
Quarter: 2021Q1

REPORT INFORMATION
  Report Type: Spontaneous
  Country: US (occurrence: US)
  Receive Date: 20201022
  Receipt Date: 20210122
  Transmission Date: 20210419
  Serious: No
  Sender: FDA-Public Use
  Company Number: 2020SGN02366

PATIENT
  Sex: Female

DRUGS (4)
  1. HERCEPTIN [Concomitant]
     Active Substance: TRASTUZUMAB
     Indication: BREAST CANCER FEMALE
  2. TUKYSA [Suspect]
     Active Substance: TUCATINIB
     Dosage: 150 MG, BID
  3. TUKYSA [Suspect]
     Active Substance: TUCATINIB
     Indication: BREAST CANCER FEMALE
     Dosage: 300 MG, BID
  4. XELODA [Concomitant]
     Active Substance: CAPECITABINE
     Indication: BREAST CANCER FEMALE

REACTIONS (11)
  - Blister [Unknown]
  - Pain in extremity [Unknown]
  - Lip pain [Unknown]
  - Fatigue [Unknown]
  - Mouth ulceration [Unknown]
  - Peripheral swelling [Unknown]
  - Feelings of worthlessness [Unknown]
  - Hot flush [Unknown]
  - Necrosis [Unknown]
  - Skin exfoliation [Unknown]
  - Product dose omission issue [Unknown]
